FAERS Safety Report 7414203-5 (Version None)
Quarter: 2011Q2

REPORT INFORMATION
  Report Type: 
  Country: None (occurrence: None)
  Receive Date: 20110414
  Receipt Date: 20110411
  Transmission Date: 20111010
  Serious: Yes (Other)
  Sender: FDA-Public Use
  Company Number: BR-PFIZER INC-2011078991

PATIENT
  Sex: Female

DRUGS (1)
  1. SUNITINIB MALATE [Suspect]

REACTIONS (1)
  - PLEURAL EFFUSION [None]
